FAERS Safety Report 11767117 (Version 1)
Quarter: 2015Q4

REPORT INFORMATION
  Report Type: Spontaneous
  Country: US (occurrence: None)
  Receive Date: 20151120
  Receipt Date: 20151120
  Transmission Date: 20160304
  Serious: Yes (Hospitalization)
  Sender: FDA-Public Use
  Company Number: None

PATIENT
  Age: 60 Year
  Sex: Male
  Weight: 122.47 kg

DRUGS (18)
  1. ZONISAMIDE. [Concomitant]
     Active Substance: ZONISAMIDE
  2. UP + UP (TARGET) ALLERGY RELIEF [Concomitant]
  3. GLYBURIDE. [Concomitant]
     Active Substance: GLYBURIDE
  4. VITAMIN D [Concomitant]
     Active Substance: CHOLECALCIFEROL
  5. ZADITOR [Concomitant]
     Active Substance: KETOTIFEN FUMARATE
  6. AMLODIPINE BESYLATE. [Concomitant]
     Active Substance: AMLODIPINE BESYLATE
  7. COQ10 [Concomitant]
     Active Substance: UBIDECARENONE
  8. DOXAZOSIN MESYLATE. [Concomitant]
     Active Substance: DOXAZOSIN MESYLATE
  9. OXYBUTYNIN CHLORIDE. [Concomitant]
     Active Substance: OXYBUTYNIN CHLORIDE
  10. LISINOPRIL. [Concomitant]
     Active Substance: LISINOPRIL
  11. CLONAZEPAM. [Concomitant]
     Active Substance: CLONAZEPAM
  12. BACTRIM [Suspect]
     Active Substance: SULFAMETHOXAZOLE\TRIMETHOPRIM
     Indication: ANTIBIOTIC THERAPY
  13. CARVEDILOL. [Concomitant]
     Active Substance: CARVEDILOL
  14. ALLOPURINOL. [Concomitant]
     Active Substance: ALLOPURINOL
  15. TOCOTRINOLS [Concomitant]
  16. TRAMADOL HCL [Concomitant]
     Active Substance: TRAMADOL HYDROCHLORIDE
  17. CHROMIUM PICOLINATE [Concomitant]
     Active Substance: CHROMIUM PICOLINATE
  18. SIMVASTATIN. [Concomitant]
     Active Substance: SIMVASTATIN

REACTIONS (4)
  - Blood potassium increased [None]
  - Movement disorder [None]
  - Muscular weakness [None]
  - Myocardial infarction [None]

NARRATIVE: CASE EVENT DATE: 20100518
